FAERS Safety Report 5616513-0 (Version None)
Quarter: 2008Q1

REPORT INFORMATION
  Report Type: 
  Country: None (occurrence: None)
  Receive Date: 20080207
  Receipt Date: 20080205
  Transmission Date: 20080703
  Serious: Yes (Other)
  Sender: FDA-Public Use
  Company Number: US-BRISTOL-MYERS SQUIBB COMPANY-14065619

PATIENT

DRUGS (1)
  1. KENALOG-40 [Suspect]

REACTIONS (1)
  - MONOPLEGIA [None]
